FAERS Safety Report 9311784 (Version 1)
Quarter: 2013Q2

REPORT INFORMATION
  Report Type: Spontaneous
  Country: JP (occurrence: JP)
  Receive Date: 20130528
  Receipt Date: 20130528
  Transmission Date: 20140414
  Serious: Yes (Hospitalization)
  Sender: FDA-Public Use
  Company Number: PHHY2013JP051736

PATIENT
  Age: 64 Year
  Sex: Male

DRUGS (1)
  1. CEFTRIAXONE SODIUM [Suspect]
     Indication: BRONCHOPNEUMONIA
     Route: 042

REACTIONS (2)
  - Altered state of consciousness [Recovered/Resolved]
  - Convulsion [Recovered/Resolved]
